FAERS Safety Report 12404765 (Version 2)
Quarter: 2016Q2

REPORT INFORMATION
  Report Type: Spontaneous
  Country: JP (occurrence: JP)
  Receive Date: 20160525
  Receipt Date: 20160606
  Transmission Date: 20160815
  Serious: Yes (Hospitalization)
  Sender: FDA-Public Use
  Company Number: JP-FRI-1000084890

PATIENT
  Age: 82 Year
  Sex: Male

DRUGS (6)
  1. REMINYL [Concomitant]
     Active Substance: GALANTAMINE
     Dates: end: 201605
  2. MEMANTINE. [Suspect]
     Active Substance: MEMANTINE
     Indication: DEMENTIA
     Dosage: 5 MG
     Route: 048
     Dates: start: 2015
  3. MADOPAR [Concomitant]
     Active Substance: BENSERAZIDE HYDROCHLORIDE\LEVODOPA
  4. URIEF [Concomitant]
     Active Substance: SILODOSIN
  5. EFUMIN [Concomitant]
  6. MEMANTINE. [Suspect]
     Active Substance: MEMANTINE
     Dosage: 10 MG
     Route: 048
     Dates: start: 2015, end: 201605

REACTIONS (1)
  - Activities of daily living impaired [Recovering/Resolving]
